FAERS Safety Report 5343847-X (Version None)
Quarter: 2007Q2

REPORT INFORMATION
  Report Type: 
  Country: None (occurrence: None)
  Receive Date: 20070531
  Receipt Date: 20070531
  Transmission Date: 20071010
  Serious: Yes (Death)
  Sender: FDA-Public Use
  Company Number: None

PATIENT
  Sex: Female
  Weight: 66.6788 kg

DRUGS (3)
  1. REVLIMID [Suspect]
     Indication: MULTIPLE MYELOMA
     Dosage: 5 MG DAILY PO
     Route: 048
     Dates: start: 20070503, end: 20070516
  2. THALIDOMIDE [Suspect]
     Indication: MULTIPLE MYELOMA
     Dosage: 100 MG DAILY PO
     Route: 048
     Dates: start: 20050831, end: 20070502
  3. DEXAMETHASONE 0.5MG TAB [Concomitant]

REACTIONS (1)
  - ACUTE HEPATIC FAILURE [None]
